FAERS Safety Report 16023885 (Version 4)
Quarter: 2019Q1

REPORT INFORMATION
  Report Type: Spontaneous
  Country: DE (occurrence: DE)
  Receive Date: 20190301
  Receipt Date: 20190311
  Transmission Date: 20190418
  Serious: Yes (Other)
  Sender: FDA-Public Use
  Company Number: PHHY2019DE038047

PATIENT
  Age: 25 Year
  Sex: Male

DRUGS (1)
  1. DEXAMETHASONE. [Suspect]
     Active Substance: DEXAMETHASONE
     Indication: ROSAI-DORFMAN SYNDROME
     Dosage: 40 MG, QD
     Route: 065

REACTIONS (7)
  - Rosai-Dorfman syndrome [Recovering/Resolving]
  - Weight decreased [Recovering/Resolving]
  - Lymphadenopathy [Recovering/Resolving]
  - Product use in unapproved indication [Unknown]
  - Bone lesion [Recovering/Resolving]
  - Pyrexia [Recovering/Resolving]
  - Disease recurrence [Recovering/Resolving]
